FAERS Safety Report 21424105 (Version 2)
Quarter: 2022Q4

REPORT INFORMATION
  Report Type: Spontaneous
  Country: US (occurrence: US)
  Receive Date: 20221007
  Receipt Date: 20221111
  Transmission Date: 20230112
  Serious: No
  Sender: FDA-Public Use
  Company Number: US-ALLERGAN-2232159US

PATIENT
  Sex: Female
  Weight: 77.11 kg

DRUGS (1)
  1. LILETTA [Suspect]
     Active Substance: LEVONORGESTREL
     Indication: Contraception
     Dosage: 52 MG, SINGLE
     Route: 015
     Dates: start: 20200625

REACTIONS (4)
  - Subchorionic haemorrhage [Unknown]
  - Malaise [Unknown]
  - Pregnancy [Unknown]
  - Drug ineffective [Unknown]
